FAERS Safety Report 7351880-1 (Version None)
Quarter: 2011Q1

REPORT INFORMATION
  Report Type: 
  Country: None (occurrence: None)
  Receive Date: 20110315
  Receipt Date: 20110308
  Transmission Date: 20110831
  Serious: Yes (Hospitalization, Other)
  Sender: FDA-Public Use
  Company Number: US-BAYER-201040630NA

PATIENT
  Sex: Female

DRUGS (7)
  1. CALTRATE + VITAMIN D [Concomitant]
  2. BETASERON [Suspect]
     Indication: MULTIPLE SCLEROSIS
     Route: 065
     Dates: start: 19980227, end: 20070101
  3. VITAMIN B-12 [Concomitant]
  4. BETASERON [Suspect]
     Route: 058
     Dates: start: 20101108
  5. IBUPROFEN [Concomitant]
     Dosage: PRE-MEDICATION
  6. BETASERON [Suspect]
     Dosage: UNKNOWN DOSAGE
     Dates: start: 20080319, end: 20080912
  7. MEGACE [Concomitant]

REACTIONS (6)
  - WEIGHT DECREASED [None]
  - MEMORY IMPAIRMENT [None]
  - INFLUENZA [None]
  - EATING DISORDER [None]
  - ASTHENIA [None]
  - GASTRIC CANCER [None]
